FAERS Safety Report 21051789 (Version 2)
Quarter: 2022Q3

REPORT INFORMATION
  Report Type: Report from Study
  Country: BR (occurrence: BR)
  Receive Date: 20220707
  Receipt Date: 20220808
  Transmission Date: 20221027
  Serious: Yes (Other)
  Sender: FDA-Public Use
  Company Number: BR-JNJFOC-20220548554

PATIENT
  Sex: Female
  Weight: 72 kg

DRUGS (6)
  1. JANSSEN COVID-19 VACCINE [Suspect]
     Active Substance: AD26.COV2.S
     Indication: COVID-19 prophylaxis
     Dosage: DOSE 1
     Route: 065
  2. REMICADE [Suspect]
     Active Substance: INFLIXIMAB
     Indication: Ankylosing spondylitis
     Dosage: PRESENTATION: AMPLE BOTTLE, LAST INFUSION IN APRIL/2022, RESUME TREATMENT IN JULY/2022.
     Route: 042
     Dates: start: 20200122
  3. REMICADE [Suspect]
     Active Substance: INFLIXIMAB
     Dosage: PRESENTATION: AMPLE BOTTLE, LAST INFUSION IN APRIL/2022, RESUME TREATMENT IN JULY/2022.
     Route: 042
  4. VITAMIN D NOS [Concomitant]
     Active Substance: VITAMIN D NOS
     Indication: Product used for unknown indication
     Route: 065
  5. CYCLOBENZAPRINE [Concomitant]
     Active Substance: CYCLOBENZAPRINE
     Indication: Product used for unknown indication
     Route: 065
  6. METHOTREXATE [Concomitant]
     Active Substance: METHOTREXATE
     Indication: Product used for unknown indication
     Route: 065

REACTIONS (6)
  - Pneumonia [Recovered/Resolved]
  - Therapeutic product effect decreased [Unknown]
  - Inflammation [Unknown]
  - Spinal pain [Unknown]
  - Tuberculin test positive [Unknown]
  - Pain in extremity [Unknown]

NARRATIVE: CASE EVENT DATE: 20220101
